FAERS Safety Report 19605513 (Version 2)
Quarter: 2023Q2

REPORT INFORMATION
  Report Type: Other
  Country: NL (occurrence: None)
  Receive Date: 20210723
  Receipt Date: 20230621
  Transmission Date: 20230721
  Serious: Yes (Death, Other)
  Sender: FDA-Public Use
  Company Number: NL-ROCHE-2872736

PATIENT

DRUGS (2)
  1. OBINUTUZUMAB [Suspect]
     Active Substance: OBINUTUZUMAB
     Indication: Chronic lymphocytic leukaemia
     Route: 042
  2. CHLORAMBUCIL [Suspect]
     Active Substance: CHLORAMBUCIL
     Indication: Chronic lymphocytic leukaemia
     Route: 065

REACTIONS (22)
  - Cardiac disorder [Fatal]
  - Infection [Fatal]
  - Neutropenia [Unknown]
  - Thrombocytopenia [Unknown]
  - Diarrhoea [Unknown]
  - Hypertension [Unknown]
  - Myelodysplastic syndrome [Unknown]
  - Myeloproliferative neoplasm [Unknown]
  - Second primary malignancy [Unknown]
  - Skin cancer [Unknown]
  - Basal cell carcinoma [Unknown]
  - Squamous cell carcinoma of skin [Unknown]
  - Squamous cell carcinoma [Unknown]
  - Malignant melanoma [Unknown]
  - Malignant melanoma [Unknown]
  - Neoplasm malignant [Unknown]
  - Adenocarcinoma gastric [Unknown]
  - Lung adenocarcinoma [Unknown]
  - Metastases to peritoneum [Unknown]
  - Papillary thyroid cancer [Unknown]
  - Prostate cancer metastatic [Unknown]
  - Prostate cancer [Unknown]
